FAERS Safety Report 23470903 (Version 1)
Quarter: 2024Q1

REPORT INFORMATION
  Report Type: Spontaneous
  Country: ZA (occurrence: None)
  Receive Date: 20240202
  Receipt Date: 20240202
  Transmission Date: 20240410
  Serious: Yes (Hospitalization)
  Sender: FDA-Public Use
  Company Number: 2024A023464

PATIENT
  Age: 76 Year
  Sex: Female

DRUGS (5)
  1. BUDESONIDE\FORMOTEROL [Suspect]
     Active Substance: BUDESONIDE\FORMOTEROL
     Indication: Asthma
     Dosage: 120 DOSE 120 UG/INHAL 160/4.5 MCG UNKNOWN
     Route: 055
  2. TIOTROPIUM BROMIDE [Concomitant]
     Active Substance: TIOTROPIUM BROMIDE
     Indication: Asthma
     Dosage: 18UG/INHAL
     Route: 055
  3. BISOPROLOL [Concomitant]
     Active Substance: BISOPROLOL\BISOPROLOL FUMARATE
     Indication: Hypertension
     Dosage: 2.0MG UNKNOWN
     Route: 048
  4. RIVAROXABAN [Concomitant]
     Active Substance: RIVAROXABAN
     Indication: Anticoagulant therapy
     Dosage: 15.0MG UNKNOWN
     Route: 048
  5. BISOPROLOL FUMARATE [Concomitant]
     Active Substance: BISOPROLOL FUMARATE
     Indication: Hypertension
     Dosage: 5.0MG UNKNOWN
     Route: 048

REACTIONS (1)
  - Lung disorder [Unknown]
